FAERS Safety Report 9711111 (Version 1)
Quarter: 2013Q4

REPORT INFORMATION
  Report Type: Spontaneous
  Country: US (occurrence: US)
  Receive Date: 20131126
  Receipt Date: 20131126
  Transmission Date: 20140711
  Serious: No
  Sender: FDA-Public Use
  Company Number: US-BRISTOL-MYERS SQUIBB COMPANY-19146265

PATIENT
  Age: 62 Year
  Sex: Male
  Weight: 83.9 kg

DRUGS (2)
  1. BYETTA PEN DISPOSABLE [Suspect]
     Indication: TYPE 2 DIABETES MELLITUS
     Dosage: 1DF= 5MCG OR 10MCG?10MCG:03JUL13 OR 05JUL13?TOTAL DOSE-2/3RD OF PEN
     Route: 058
  2. GLUCOPHAGE [Concomitant]

REACTIONS (2)
  - Diarrhoea [Unknown]
  - Eructation [Unknown]
